FAERS Safety Report 18701185 (Version 1)
Quarter: 2021Q1

REPORT INFORMATION
  Report Type: Spontaneous
  Country: US (occurrence: US)
  Receive Date: 20210105
  Receipt Date: 20210105
  Transmission Date: 20210419
  Serious: Yes (Hospitalization)
  Sender: FDA-Public Use
  Company Number: None

PATIENT
  Age: 69 Year
  Sex: Female
  Weight: 72.1 kg

DRUGS (3)
  1. DEXAMETHASONE. [Suspect]
     Active Substance: DEXAMETHASONE
     Dates: end: 20201221
  2. OLANZAPINE. [Suspect]
     Active Substance: OLANZAPINE
     Dates: end: 20201221
  3. ALOXI [Suspect]
     Active Substance: PALONOSETRON HYDROCHLORIDE
     Dates: end: 20201218

REACTIONS (9)
  - Chills [None]
  - Fatigue [None]
  - Pyrexia [None]
  - Headache [None]
  - Nausea [None]
  - Pollakiuria [None]
  - Flank pain [None]
  - Body temperature increased [None]
  - Erythema [None]

NARRATIVE: CASE EVENT DATE: 20201227
